FAERS Safety Report 20725462 (Version 2)
Quarter: 2022Q2

REPORT INFORMATION
  Report Type: Spontaneous
  Country: CN (occurrence: None)
  Receive Date: 20220419
  Receipt Date: 20220420
  Transmission Date: 20220721
  Serious: Yes (Hospitalization)
  Sender: FDA-Public Use
  Company Number: 2022A149977

PATIENT
  Age: 26542 Day
  Sex: Male
  Weight: 54 kg

DRUGS (3)
  1. DURVALUMAB [Suspect]
     Active Substance: DURVALUMAB
     Indication: Cardiac neoplasm malignant
     Route: 041
  2. CAPECITABINE [Suspect]
     Active Substance: CAPECITABINE
     Indication: Cardiac neoplasm malignant
     Route: 048
     Dates: start: 20220304, end: 20220317
  3. OXALIPLATIN [Suspect]
     Active Substance: OXALIPLATIN
     Route: 041
     Dates: start: 20220304, end: 20220304

REACTIONS (1)
  - Myocardial injury [Not Recovered/Not Resolved]

NARRATIVE: CASE EVENT DATE: 20220323
